FAERS Safety Report 8516625-8 (Version None)
Quarter: 2012Q3

REPORT INFORMATION
  Report Type: 
  Country: None (occurrence: None)
  Receive Date: 20120718
  Receipt Date: 20120713
  Transmission Date: 20120928
  Serious: Yes (Death, Other)
  Sender: FDA-Public Use
  Company Number: FR-JNJFOC-20120707301

PATIENT
  Sex: Male

DRUGS (5)
  1. CHLORAMBUCIL [Suspect]
     Indication: MANTLE CELL LYMPHOMA
     Dosage: FROM DAY 20 TO 29
     Route: 065
  2. VELCADE [Suspect]
     Indication: MANTLE CELL LYMPHOMA
     Dosage: ON DAYS 1, 4, 8 AND 11
     Route: 065
  3. RITUXIMAB [Suspect]
     Indication: MANTLE CELL LYMPHOMA
     Dosage: ON DAY 1 (AND DAY 8 OF CYCLE 1)
     Route: 065
  4. DEXAMETHASONE [Suspect]
     Indication: MANTLE CELL LYMPHOMA
     Dosage: FROM DAY 1 TO 4
     Route: 065
  5. DOXORUBICIN HCL [Suspect]
     Indication: MANTLE CELL LYMPHOMA
     Dosage: AS A CONTINUOUS INFUSION FROM DAY 1 TO 4
     Route: 042

REACTIONS (4)
  - SEPSIS [None]
  - BACTERIAL INFECTION [None]
  - NEUTROPENIC INFECTION [None]
  - FUNGAL INFECTION [None]
